FAERS Safety Report 4363923-8 (Version None)
Quarter: 2004Q2

REPORT INFORMATION
  Report Type: 
  Country: None (occurrence: None)
  Receive Date: 20040518
  Receipt Date: 20040413
  Transmission Date: 20050107
  Serious: No
  Sender: FDA-Public Use
  Company Number: PHEH2004US04169

PATIENT
  Age: 55 Year
  Sex: Male

DRUGS (1)
  1. GLEEVEC [Suspect]
     Indication: LEUKAEMIA
     Dosage: 400 MG, QD, ORAL
     Route: 048
     Dates: start: 20030601

REACTIONS (2)
  - DIARRHOEA [None]
  - IRRITABILITY [None]
